FAERS Safety Report 20037131 (Version 1)
Quarter: 2021Q4

REPORT INFORMATION
  Report Type: Other
  Country: CO (occurrence: CO)
  Receive Date: 20211105
  Receipt Date: 20211105
  Transmission Date: 20220303
  Serious: Yes (Other)
  Sender: FDA-Public Use
  Company Number: CO-002147023-NVSC2020CO176414

PATIENT
  Age: 61 Year
  Sex: Female
  Weight: 85 kg

DRUGS (1)
  1. XOLAIR [Suspect]
     Active Substance: OMALIZUMAB
     Indication: Asthma
     Route: 058
     Dates: start: 20171108

REACTIONS (4)
  - Cardiac failure [Unknown]
  - Infarction [Unknown]
  - Hypertension [Unknown]
  - Product administration error [Unknown]

NARRATIVE: CASE EVENT DATE: 20200617
